FAERS Safety Report 6117005-5 (Version None)
Quarter: 2009Q1

REPORT INFORMATION
  Report Type: 
  Country: None (occurrence: None)
  Receive Date: 20090314
  Receipt Date: 20090105
  Transmission Date: 20090719
  Serious: No
  Sender: FDA-Public Use
  Company Number: US-ABBOTT-09P-163-0495743-00

PATIENT
  Sex: Female
  Weight: 61.29 kg

DRUGS (5)
  1. HUMIRA [Suspect]
     Indication: PSORIASIS
     Route: 058
     Dates: start: 20081030
  2. HUMIRA [Suspect]
     Indication: PSORIATIC ARTHROPATHY
  3. UNNAMED THYROID MEDICATION [Concomitant]
     Indication: DRUG USE FOR UNKNOWN INDICATION
  4. IMMITREX [Concomitant]
     Indication: MIGRAINE
  5. ACTONEL [Concomitant]
     Indication: BONE DISORDER

REACTIONS (1)
  - PSORIATIC ARTHROPATHY [None]
